FAERS Safety Report 13722154 (Version 2)
Quarter: 2017Q3

REPORT INFORMATION
  Report Type: Spontaneous
  Country: US (occurrence: US)
  Receive Date: 20170706
  Receipt Date: 20170707
  Transmission Date: 20171127
  Serious: Yes (Other)
  Sender: FDA-Public Use
  Company Number: US-PFIZER INC-2017285217

PATIENT
  Age: 25 Year
  Sex: Female
  Weight: 67.13 kg

DRUGS (1)
  1. DEPO-PROVERA [Suspect]
     Active Substance: MEDROXYPROGESTERONE ACETATE
     Indication: CONTRACEPTION
     Dosage: 1 INJECTION
     Dates: start: 20160116, end: 20160116

REACTIONS (2)
  - Alopecia [Not Recovered/Not Resolved]
  - Infertility female [Not Recovered/Not Resolved]

NARRATIVE: CASE EVENT DATE: 2016
